FAERS Safety Report 9002269 (Version 2)
Quarter: 2013Q1

REPORT INFORMATION
  Report Type: Spontaneous
  Country: US (occurrence: US)
  Receive Date: 20130107
  Receipt Date: 20130131
  Transmission Date: 20140127
  Serious: Yes (Hospitalization)
  Sender: FDA-Public Use
  Company Number: US-PFIZER INC-2013003559

PATIENT
  Age: 80 Year
  Sex: Female

DRUGS (3)
  1. EFFEXOR XR [Suspect]
     Indication: DEPRESSION
     Dosage: 150 MG, UNK
     Dates: end: 2012
  2. EFFEXOR XR [Suspect]
     Dosage: 37.5 MG, UNK
     Dates: start: 20121224
  3. EFFEXOR XR [Suspect]
     Dosage: 150 MG, UNK

REACTIONS (10)
  - Pneumonia [Unknown]
  - Withdrawal syndrome [Not Recovered/Not Resolved]
  - Depression [Unknown]
  - Gastric disorder [Unknown]
  - Dizziness [Unknown]
  - Migraine [Unknown]
  - Abnormal behaviour [Unknown]
  - General physical health deterioration [Unknown]
  - Bedridden [Unknown]
  - Drug ineffective [Not Recovered/Not Resolved]
